FAERS Safety Report 4759817-6 (Version None)
Quarter: 2005Q3

REPORT INFORMATION
  Report Type: 
  Country: None (occurrence: None)
  Receive Date: 20050831
  Receipt Date: 20050831
  Transmission Date: 20060218
  Serious: Yes (Hospitalization)
  Sender: FDA-Public Use
  Company Number: None

PATIENT
  Sex: Female
  Weight: 99.7913 kg

DRUGS (2)
  1. XYREM [Suspect]
     Indication: HYPERSOMNIA
     Dosage: 9 MG , DIVIDED DOSE TWICE NIGHTLY PO
     Route: 048
     Dates: start: 20040101, end: 20040308
  2. XYREM [Suspect]
     Indication: INSOMNIA
     Dosage: 9 MG , DIVIDED DOSE TWICE NIGHTLY PO
     Route: 048
     Dates: start: 20040101, end: 20040308

REACTIONS (7)
  - CONFUSIONAL STATE [None]
  - ELECTROENCEPHALOGRAM ABNORMAL [None]
  - EPILEPSY [None]
  - MOOD ALTERED [None]
  - PETIT MAL EPILEPSY [None]
  - THINKING ABNORMAL [None]
  - THOUGHT BLOCKING [None]
